FAERS Safety Report 4927793-9 (Version None)
Quarter: 2006Q1

REPORT INFORMATION
  Report Type: 
  Country: None (occurrence: None)
  Receive Date: 20060222
  Receipt Date: 20060207
  Transmission Date: 20060701
  Serious: Yes (Hospitalization)
  Sender: FDA-Public Use
  Company Number: FACT0600071

PATIENT
  Age: 26 Year
  Sex: Female
  Weight: 57.1 kg

DRUGS (3)
  1. FACTIVE [Suspect]
     Indication: RESPIRATORY TRACT INFECTION BACTERIAL
     Dosage: 320 MG, QD, ORAL
     Route: 048
     Dates: start: 20060105, end: 20060109
  2. BIAXIN [Suspect]
     Indication: SINUSITIS
     Dates: start: 20051231, end: 20060104
  3. ORTHO TRI-CYCLEN [Concomitant]

REACTIONS (13)
  - CHROMATURIA [None]
  - DECREASED APPETITE [None]
  - DEHYDRATION [None]
  - EATING DISORDER [None]
  - HEPATIC NECROSIS [None]
  - HEPATITIS ACUTE [None]
  - HEPATITIS CHOLESTATIC [None]
  - HYPOKALAEMIA [None]
  - INSOMNIA [None]
  - LYMPHADENOPATHY [None]
  - PANCREATITIS [None]
  - WEIGHT DECREASED [None]
  - WHITE BLOOD CELL COUNT INCREASED [None]
